FAERS Safety Report 5086100-4 (Version None)
Quarter: 2006Q3

REPORT INFORMATION
  Report Type: 
  Country: None (occurrence: None)
  Receive Date: 20060818
  Receipt Date: 20060811
  Transmission Date: 20061208
  Serious: Yes (Hospitalization, Other)
  Sender: FDA-Public Use
  Company Number: 2006-06-0324

PATIENT
  Age: 36 Year
  Sex: Female

DRUGS (1)
  1. NASONEX [Suspect]
     Indication: RHINITIS
     Dosage: 1 SPR QNAR NASAL SPRAY
     Route: 045
     Dates: start: 20060603, end: 20060605

REACTIONS (3)
  - BLOOD PRESSURE DIASTOLIC DECREASED [None]
  - BLOOD PRESSURE SYSTOLIC INCREASED [None]
  - RESPIRATORY DEPRESSION [None]
